FAERS Safety Report 9256933 (Version 3)
Quarter: 2013Q3

REPORT INFORMATION
  Report Type: Spontaneous
  Country: US (occurrence: US)
  Receive Date: 20130426
  Receipt Date: 20130927
  Transmission Date: 20140515
  Serious: Yes (Hospitalization, Disabling)
  Sender: FDA-Public Use
  Company Number: US-ASTRAZENECA-2013SE27289

PATIENT
  Age: 41 Year
  Sex: Female
  Weight: 69.9 kg

DRUGS (27)
  1. NEXIUM [Suspect]
     Indication: DYSPEPSIA
     Route: 048
  2. NEXIUM [Suspect]
     Indication: ABDOMINAL DISCOMFORT
     Route: 048
  3. NEXIUM [Suspect]
     Indication: DYSPEPSIA
     Route: 048
  4. NEXIUM [Suspect]
     Indication: ABDOMINAL DISCOMFORT
     Route: 048
  5. NEXIUM [Suspect]
     Indication: DYSPEPSIA
     Dosage: TWO TIMES DAY
     Route: 048
     Dates: start: 2001, end: 2012
  6. NEXIUM [Suspect]
     Indication: ABDOMINAL DISCOMFORT
     Dosage: TWO TIMES DAY
     Route: 048
     Dates: start: 2001, end: 2012
  7. NEXIUM [Suspect]
     Indication: DYSPEPSIA
     Route: 048
     Dates: start: 20090724
  8. NEXIUM [Suspect]
     Indication: ABDOMINAL DISCOMFORT
     Route: 048
     Dates: start: 20090724
  9. PRILOSEC [Suspect]
     Indication: ABDOMINAL DISCOMFORT
     Route: 048
     Dates: start: 200103
  10. PRILOSEC [Suspect]
     Indication: ABDOMINAL DISCOMFORT
     Route: 048
  11. PRILOSEC [Suspect]
     Indication: ABDOMINAL DISCOMFORT
     Route: 048
  12. PREVACID [Concomitant]
     Dates: start: 20011219
  13. ZANTAC [Concomitant]
  14. PEPCID [Concomitant]
  15. PREMARIN [Concomitant]
     Indication: HORMONE THERAPY
  16. CALCIUM CARBONATE [Concomitant]
     Indication: MINERAL SUPPLEMENTATION
     Dosage: 400 MG 1 DAILY
  17. POTASSIUM CHLORIDE [Concomitant]
     Indication: MINERAL SUPPLEMENTATION
  18. CYANOCOBALAMIN [Concomitant]
     Dosage: 1000 MCG/ML
  19. METOPROLOL SUC [Concomitant]
     Indication: BLOOD PRESSURE ABNORMAL
  20. METOPROLOL SUC [Concomitant]
     Indication: CARDIAC DISORDER
  21. HYDROXYZINE PARMOATE [Concomitant]
     Indication: ANXIETY
  22. LOVASTATIN [Concomitant]
     Indication: BLOOD CHOLESTEROL ABNORMAL
  23. LOVASTATIN [Concomitant]
     Indication: BLOOD CHOLESTEROL ABNORMAL
     Dates: start: 20081027
  24. LORATADINE [Concomitant]
     Indication: HYPERSENSITIVITY
  25. HYDROCHLOROTHIAZIDE [Concomitant]
     Indication: FLUID RETENTION
  26. ALENDRONATE SODIUM [Concomitant]
     Indication: BONE LOSS
  27. LAMICTAL [Concomitant]
     Dates: start: 20081210

REACTIONS (12)
  - Convulsion [Unknown]
  - Endometriosis [Unknown]
  - Gallbladder disorder [Unknown]
  - Anaemia [Unknown]
  - Abdominal discomfort [Unknown]
  - Osteoporosis [Unknown]
  - Bone density decreased [Unknown]
  - Multiple fractures [Unknown]
  - Bone loss [Unknown]
  - Calcium deficiency [Unknown]
  - Vitamin D deficiency [Unknown]
  - Scoliosis [Unknown]
